FAERS Safety Report 10856439 (Version 1)
Quarter: 2015Q1

REPORT INFORMATION
  Report Type: Spontaneous
  Country: CH (occurrence: CH)
  Receive Date: 20150223
  Receipt Date: 20150223
  Transmission Date: 20150721
  Serious: Yes (Other)
  Sender: FDA-Public Use
  Company Number: CH-ELI_LILLY_AND_COMPANY-CH201502004806

PATIENT
  Age: 43 Year
  Sex: Male
  Weight: 80 kg

DRUGS (4)
  1. FLUCTINE [Suspect]
     Active Substance: FLUOXETINE HYDROCHLORIDE
     Indication: PRODUCT USED FOR UNKNOWN INDICATION
     Dosage: 40 MG, BID
     Route: 048
  2. KRANIT NOVA [Concomitant]
     Dosage: UNK
     Route: 048
  3. FLUCTINE [Interacting]
     Active Substance: FLUOXETINE HYDROCHLORIDE
     Dosage: 40 MG, QD
     Route: 065
  4. EMEDRIN N [Interacting]
     Active Substance: DEXTROMETHORPHAN HYDROBROMIDE
     Indication: PRODUCT USED FOR UNKNOWN INDICATION
     Dosage: 20 ML, UNKNOWN
     Route: 048

REACTIONS (9)
  - Pain in extremity [Unknown]
  - Dizziness [Unknown]
  - Drug interaction [Unknown]
  - Diarrhoea [Unknown]
  - Hyperhidrosis [Unknown]
  - Tremor [Unknown]
  - Erythema [Unknown]
  - Headache [Unknown]
  - Serotonin syndrome [Unknown]

NARRATIVE: CASE EVENT DATE: 20140228
